FAERS Safety Report 20535219 (Version 1)
Quarter: 2022Q1

REPORT INFORMATION
  Report Type: Spontaneous
  Country: FR (occurrence: FR)
  Receive Date: 20220302
  Receipt Date: 20220302
  Transmission Date: 20220423
  Serious: Yes (Hospitalization)
  Sender: FDA-Public Use
  Company Number: None

PATIENT
  Age: 32 Year
  Sex: Male
  Weight: 93 kg

DRUGS (6)
  1. PREDNISOLONE [Suspect]
     Active Substance: PREDNISOLONE
     Indication: Product used for unknown indication
     Dosage: 60 MG
     Route: 048
     Dates: start: 20220114, end: 20220115
  2. AMOXICILLIN [Suspect]
     Active Substance: AMOXICILLIN
     Indication: Infection
     Dosage: 2 G
     Route: 048
     Dates: start: 20220114, end: 20220115
  3. ACETYLCYSTEINE [Suspect]
     Active Substance: ACETYLCYSTEINE
     Indication: Respiratory disorder
     Dosage: IN SACHETS,  FORM STRENGTH: 200 MG, UNIT DOSE: 200 MG
     Route: 048
     Dates: start: 20220114, end: 20220115
  4. MEQUITAZINE [Suspect]
     Active Substance: MEQUITAZINE
     Indication: Product used for unknown indication
     Dosage: BREAKABLE TABLET, FORM STRENGTH: 10 MG, UNIT DOSE: 10 MG
     Route: 048
     Dates: start: 20220114, end: 20220115
  5. ELETRIPTAN [Concomitant]
     Active Substance: ELETRIPTAN
  6. OXETORONE [Concomitant]
     Active Substance: OXETORONE

REACTIONS (1)
  - Acute generalised exanthematous pustulosis [Recovering/Resolving]

NARRATIVE: CASE EVENT DATE: 20220115
